FAERS Safety Report 9105054 (Version 1)
Quarter: 2013Q1

REPORT INFORMATION
  Report Type: Spontaneous
  Country: CH (occurrence: CH)
  Receive Date: 20130220
  Receipt Date: 20130220
  Transmission Date: 20140127
  Serious: Yes (Other)
  Sender: FDA-Public Use
  Company Number: CH-ROCHE-1078798

PATIENT
  Age: 26 Year
  Sex: Female

DRUGS (8)
  1. CELLCEPT [Suspect]
     Indication: SYSTEMIC LUPUS ERYTHEMATOSUS
     Route: 064
     Dates: start: 20120418, end: 20120418
  2. MABTHERA [Suspect]
     Indication: SYSTEMIC LUPUS ERYTHEMATOSUS
     Route: 064
     Dates: start: 201202, end: 201202
  3. BACTRIM FORTE [Suspect]
     Indication: PRODUCT USED FOR UNKNOWN INDICATION
     Route: 064
  4. PLAQUENIL [Suspect]
     Indication: PRODUCT USED FOR UNKNOWN INDICATION
     Route: 064
  5. PREDNISONE [Suspect]
     Indication: PRODUCT USED FOR UNKNOWN INDICATION
     Route: 064
  6. CALCIMAGON-D3 [Concomitant]
     Route: 064
  7. AMOXICILLINE [Concomitant]
     Route: 064
     Dates: end: 201203
  8. FOLIC ACID [Concomitant]
     Route: 064

REACTIONS (2)
  - Abortion spontaneous complicated [Unknown]
  - Exposure during pregnancy [Unknown]
